FAERS Safety Report 18661476 (Version 2)
Quarter: 2021Q1

REPORT INFORMATION
  Report Type: Spontaneous
  Country: JP (occurrence: JP)
  Receive Date: 20201224
  Receipt Date: 20210216
  Transmission Date: 20210419
  Serious: Yes (Hospitalization)
  Sender: FDA-Public Use
  Company Number: JP-PFIZER INC-2020506371

PATIENT
  Age: 50 Year
  Sex: Female
  Weight: 57 kg

DRUGS (4)
  1. FULVESTRANT. [Suspect]
     Active Substance: FULVESTRANT
     Indication: BREAST CANCER METASTATIC
     Dosage: 500 MG, 1X/DAY
     Route: 030
     Dates: start: 20201102
  2. LH?RH [GONADORELIN] [Suspect]
     Active Substance: GONADORELIN
     Dosage: 11.25 MG, 1X/DAY
     Route: 058
     Dates: start: 20201030
  3. IBRANCE [Suspect]
     Active Substance: PALBOCICLIB
     Dosage: 100 MG
     Dates: start: 20201116
  4. IBRANCE [Suspect]
     Active Substance: PALBOCICLIB
     Indication: BREAST CANCER METASTATIC
     Dosage: 125 MG
     Route: 048
     Dates: start: 20201102, end: 20201115

REACTIONS (5)
  - Stomatitis [Recovered/Resolved]
  - Uvulitis [Recovering/Resolving]
  - Hypophagia [Unknown]
  - Neutrophil count decreased [Unknown]
  - Dehydration [Unknown]

NARRATIVE: CASE EVENT DATE: 202011
